FAERS Safety Report 8923967 (Version 1)
Quarter: 2012Q4

REPORT INFORMATION
  Report Type: 
  Country: DE (occurrence: DE)
  Receive Date: 20121126
  Receipt Date: 20121126
  Transmission Date: 20130627
  Serious: Yes (Hospitalization, Other)
  Sender: FDA-Public Use
  Company Number: DE-ELI_LILLY_AND_COMPANY-DE201211004667

PATIENT
  Age: 80 Year
  Sex: Female

DRUGS (6)
  1. FORSTEO [Suspect]
     Indication: OSTEOPOROSIS
     Dosage: UNK, qd
     Route: 058
     Dates: start: 20120503
  2. METFORMIN [Concomitant]
     Dosage: UNK, unknown
     Route: 065
  3. INSULIN [Concomitant]
     Dosage: UNK, bid
     Route: 065
  4. TENORMIN [Concomitant]
     Dosage: UNK, unknown
     Route: 065
  5. ANALGESICS [Concomitant]
     Indication: PAIN
     Dosage: UNK, unknown
     Route: 065
  6. TILIDIN [Concomitant]
     Dosage: UNK, bid
     Route: 065

REACTIONS (2)
  - Knee arthroplasty [Not Recovered/Not Resolved]
  - Inflammation of wound [Not Recovered/Not Resolved]
